FAERS Safety Report 5880117-5 (Version None)
Quarter: 2008Q3

REPORT INFORMATION
  Report Type: 
  Country: None (occurrence: None)
  Receive Date: 20080909
  Receipt Date: 20080909
  Transmission Date: 20090109
  Serious: Yes (Hospitalization)
  Sender: FDA-Public Use
  Company Number: None

PATIENT
  Age: 26 Year
  Sex: Female
  Weight: 45.3597 kg

DRUGS (8)
  1. LEPTIN [Suspect]
     Indication: DIABETES MELLITUS
     Dosage: 42 UNITS SQ BID
     Route: 058
     Dates: start: 20070806
  2. LEPTIN [Suspect]
     Indication: HYPERTRIGLYCERIDAEMIA
     Dosage: 42 UNITS SQ BID
     Route: 058
     Dates: start: 20070806
  3. LEPTIN [Suspect]
     Indication: LIPODYSTROPHY ACQUIRED
     Dosage: 42 UNITS SQ BID
     Route: 058
     Dates: start: 20070806
  4. MICARDIS [Concomitant]
  5. TRICOR [Concomitant]
  6. LABETALOL HCL [Concomitant]
  7. METFORMIN [Concomitant]
  8. AMITRIPTYLINE HCL [Concomitant]

REACTIONS (7)
  - ADHESION [None]
  - ENDOMETRIOSIS [None]
  - HAEMOGLOBIN DECREASED [None]
  - POST PROCEDURAL COMPLICATION [None]
  - POST PROCEDURAL HAEMORRHAGE [None]
  - PROCEDURAL PAIN [None]
  - THROMBOSIS [None]
